FAERS Safety Report 5844038-6 (Version None)
Quarter: 2008Q3

REPORT INFORMATION
  Report Type: 
  Country: None (occurrence: None)
  Receive Date: 20080813
  Receipt Date: 20080804
  Transmission Date: 20090109
  Serious: Yes (Other)
  Sender: FDA-Public Use
  Company Number: DE-ELI_LILLY_AND_COMPANY-DE200808001021

PATIENT
  Sex: Male

DRUGS (1)
  1. YENTREVE [Suspect]
     Dosage: 20 MG, ONCE
     Route: 048
     Dates: start: 20080802, end: 20080802

REACTIONS (1)
  - ACCIDENTAL DRUG INTAKE BY CHILD [None]
